FAERS Safety Report 21211110 (Version 1)
Quarter: 2022Q3

REPORT INFORMATION
  Report Type: Spontaneous
  Country: CN (occurrence: None)
  Receive Date: 20220815
  Receipt Date: 20220815
  Transmission Date: 20221027
  Serious: Yes (Life-Threatening, Hospitalization)
  Sender: FDA-Public Use
  Company Number: CN-ROCHE-3160289

PATIENT
  Age: 70 Year
  Sex: Male
  Weight: 61.5 kg

DRUGS (1)
  1. ZELBORAF [Suspect]
     Active Substance: VEMURAFENIB
     Indication: Malignant melanoma
     Route: 048
     Dates: start: 20220110

REACTIONS (1)
  - Malignant hypertension [Unknown]

NARRATIVE: CASE EVENT DATE: 20220709
